FAERS Safety Report 18038030 (Version 1)
Quarter: 2020Q3

REPORT INFORMATION
  Report Type: Report from Study
  Country: None (occurrence: US)
  Receive Date: 20200718
  Receipt Date: 20200718
  Transmission Date: 20201103
  Serious: Yes (Hospitalization)
  Sender: FDA-Public Use
  Company Number: US-ABBVIE-20K-163-3483512-00

PATIENT
  Age: 49 Year
  Sex: Female

DRUGS (2)
  1. HUMIRA [Suspect]
     Active Substance: ADALIMUMAB
     Dosage: CITRATE FREE
     Route: 058
     Dates: start: 2020
  2. HUMIRA [Suspect]
     Active Substance: ADALIMUMAB
     Indication: HIDRADENITIS
     Dosage: CITRATE FREE
     Route: 058
     Dates: end: 202001

REACTIONS (6)
  - Oxygen saturation decreased [Unknown]
  - Coronavirus test positive [Unknown]
  - Thrombosis [Unknown]
  - Sinusitis [Not Recovered/Not Resolved]
  - Bronchitis [Unknown]
  - Pneumonia [Unknown]

NARRATIVE: CASE EVENT DATE: 202001
